FAERS Safety Report 14663502 (Version 1)
Quarter: 2018Q1

REPORT INFORMATION
  Report Type: Spontaneous
  Country: US (occurrence: US)
  Receive Date: 20180321
  Receipt Date: 20180321
  Transmission Date: 20180509
  Serious: Yes (Other)
  Sender: FDA-Public Use
  Company Number: PHEH2018US010004

PATIENT
  Sex: Female

DRUGS (1)
  1. VOTRIENT [Suspect]
     Active Substance: PAZOPANIB HYDROCHLORIDE
     Indication: RENAL CANCER
     Dosage: 4 DF, QD (ONE HOUR BEFORE OR 2 HOURS AFTER FOOD)
     Route: 065

REACTIONS (8)
  - Diarrhoea [Unknown]
  - Diabetes mellitus [Unknown]
  - Nephrolithiasis [Unknown]
  - Weight decreased [Unknown]
  - Decreased appetite [Unknown]
  - Depression [Unknown]
  - Dysgeusia [Unknown]
  - Fatigue [Unknown]
